FAERS Safety Report 7249739-3 (Version None)
Quarter: 2011Q1

REPORT INFORMATION
  Report Type: 
  Country: None (occurrence: None)
  Receive Date: 20110128
  Receipt Date: 20091203
  Transmission Date: 20110831
  Serious: No
  Sender: FDA-Public Use
  Company Number: A0833180A

PATIENT
  Age: 66 Year
  Sex: Male

DRUGS (1)
  1. WELLBUTRIN [Suspect]
     Indication: DEPRESSION
     Dosage: 200MG IN THE MORNING
     Route: 048
     Dates: start: 20091118

REACTIONS (2)
  - DIZZINESS [None]
  - SLUGGISHNESS [None]
